FAERS Safety Report 4773260-5 (Version None)
Quarter: 2005Q3

REPORT INFORMATION
  Report Type: 
  Country: None (occurrence: None)
  Receive Date: 20050916
  Receipt Date: 20050907
  Transmission Date: 20060218
  Serious: Yes (Hospitalization, Other)
  Sender: FDA-Public Use
  Company Number: 2005125270

PATIENT
  Age: 55 Year
  Sex: Female
  Weight: 63.5036 kg

DRUGS (7)
  1. GLUCOTROL [Suspect]
     Indication: ILL-DEFINED DISORDER
     Dosage: 20 MG (10 MG, 2 IN 1 D),
     Dates: start: 19930101
  2. ZOLOFT [Suspect]
     Indication: DEPRESSION
     Dates: start: 20020101
  3. LASIX [Concomitant]
  4. WARFARIN SODIUM [Concomitant]
  5. INSULIN [Concomitant]
  6. K-DUR 10 [Concomitant]
  7. ALBUTEROL [Concomitant]

REACTIONS (1)
  - DEPRESSION [None]
